FAERS Safety Report 7798806-4 (Version None)
Quarter: 2011Q4

REPORT INFORMATION
  Report Type: 
  Country: None (occurrence: None)
  Receive Date: 20111004
  Receipt Date: 20111004
  Transmission Date: 20120403
  Serious: Yes (Other)
  Sender: FDA-Public Use
  Company Number: None

PATIENT
  Sex: Female
  Weight: 68.0396 kg

DRUGS (3)
  1. LEVOTHYROXINE SODIUM [Suspect]
     Dosage: 25MCG ONE PO DAILY ; 100MCG ONE PO DAILY
     Route: 048
     Dates: start: 20110311
  2. LEVOTHYROXINE SODIUM [Suspect]
     Dosage: 25MCG ONE PO DAILY ; 100MCG ONE PO DAILY
     Route: 048
     Dates: start: 20110422
  3. NORTRIPTYLINE HCL [Concomitant]

REACTIONS (1)
  - URTICARIA [None]
